FAERS Safety Report 9294549 (Version 3)
Quarter: 2013Q4

REPORT INFORMATION
  Report Type: Spontaneous
  Country: US (occurrence: US)
  Receive Date: 20130517
  Receipt Date: 20131227
  Transmission Date: 20140711
  Serious: Yes (Hospitalization, Other)
  Sender: FDA-Public Use
  Company Number: US-AMGEN-USASP2013034467

PATIENT
  Age: 55 Year
  Sex: Female
  Weight: 78.46 kg

DRUGS (9)
  1. ENBREL [Suspect]
     Indication: RHEUMATOID ARTHRITIS
     Dosage: 50 MG, QWK
     Route: 058
  2. METHOTREXATE [Concomitant]
     Dosage: 2.5 MG, UNK
  3. LISINOPRIL [Concomitant]
     Dosage: 2.5 MG, UNK
  4. SIMVASTATIN [Concomitant]
     Dosage: 10 MG, UNK
  5. FEXOFENADINE [Concomitant]
     Dosage: 180 MG, UNK
  6. NOVOLOG [Concomitant]
     Dosage: 100 PER ML
  7. LEVOTHYROXIN [Concomitant]
     Dosage: 125 MUG, UNK
  8. LIDODERM [Concomitant]
     Dosage: 5 %, UNK
  9. FOLIC ACID [Concomitant]
     Dosage: 20 MG, UNK

REACTIONS (10)
  - Cerebrovascular accident [Unknown]
  - Cellulitis [Unknown]
  - Osteoarthritis [Unknown]
  - Arthralgia [Unknown]
  - Joint effusion [Unknown]
  - Hypoaesthesia [Unknown]
  - Back pain [Unknown]
  - Cyst [Unknown]
  - Paraesthesia [Unknown]
  - Papilloma viral infection [Unknown]
